FAERS Safety Report 5775529-4 (Version None)
Quarter: 2008Q2

REPORT INFORMATION
  Report Type: 
  Country: None (occurrence: None)
  Receive Date: 20080612
  Receipt Date: 20080603
  Transmission Date: 20081010
  Serious: Yes (Hospitalization)
  Sender: FDA-Public Use
  Company Number: DSA_62077_2008

PATIENT

DRUGS (10)
  1. DIHYDROERGOTAMINE MESYLATE [Suspect]
     Indication: DRUG USE FOR UNKNOWN INDICATION
     Dosage: DF ORAL
     Route: 048
  2. PROTHIADEN /00160401/ [Concomitant]
  3. ANAFRANIL [Concomitant]
  4. VENCOLL [Concomitant]
  5. LENDORMIN [Concomitant]
  6. SENNOSIDE [Concomitant]
  7. SHINLUCK [Concomitant]
  8. LAXOBERON [Concomitant]
  9. LORAZEPAM [Concomitant]
  10. PAXIL [Concomitant]

REACTIONS (1)
  - DEPRESSED LEVEL OF CONSCIOUSNESS [None]
